FAERS Safety Report 8119193-8 (Version None)
Quarter: 2012Q1

REPORT INFORMATION
  Report Type: 
  Country: None (occurrence: None)
  Receive Date: 20120207
  Receipt Date: 20120123
  Transmission Date: 20120608
  Serious: Yes (Hospitalization)
  Sender: FDA-Public Use
  Company Number: US-WATSON-2012-01491

PATIENT
  Age: 46 Year
  Sex: Male

DRUGS (4)
  1. IBUPROFEN [Suspect]
     Indication: PYREXIA
     Route: 065
  2. IBUPROFEN [Suspect]
     Indication: DECREASED APPETITE
  3. IBUPROFEN [Suspect]
     Indication: CHILLS
  4. IBUPROFEN [Suspect]
     Indication: ABDOMINAL PAIN

REACTIONS (6)
  - PORTAL VEIN PHLEBITIS [None]
  - EROSIVE OESOPHAGITIS [None]
  - STREPTOCOCCAL INFECTION [None]
  - MELAENA [None]
  - GASTRITIS EROSIVE [None]
  - SEPSIS [None]
